FAERS Safety Report 21592563 (Version 1)
Quarter: 2022Q4

REPORT INFORMATION
  Report Type: Spontaneous
  Country: US (occurrence: None)
  Receive Date: 20221112
  Receipt Date: 20221112
  Transmission Date: 20230113
  Serious: Yes (Hospitalization)
  Sender: FDA-Public Use
  Company Number: None

PATIENT
  Age: 78 Year
  Sex: Female
  Weight: 98.5 kg

DRUGS (3)
  1. TAXOL [Suspect]
     Active Substance: PACLITAXEL
     Dates: end: 20220830
  2. PERTUZUMAB [Suspect]
     Active Substance: PERTUZUMAB
     Dates: end: 20221018
  3. HERCEPTIN [Suspect]
     Active Substance: TRASTUZUMAB
     Dates: end: 20221018

REACTIONS (11)
  - Discomfort [None]
  - Cough [None]
  - Fatigue [None]
  - Dyspnoea [None]
  - Brain natriuretic peptide abnormal [None]
  - Pulmonary oedema [None]
  - Cardiomegaly [None]
  - Lung opacity [None]
  - Hypoxia [None]
  - Cardiac failure [None]
  - Diastolic dysfunction [None]

NARRATIVE: CASE EVENT DATE: 20221025
